FAERS Safety Report 14776544 (Version 1)
Quarter: 2018Q2

REPORT INFORMATION
  Report Type: Spontaneous
  Country: FR (occurrence: FR)
  Receive Date: 20180418
  Receipt Date: 20180418
  Transmission Date: 20180711
  Serious: Yes (Hospitalization)
  Sender: FDA-Public Use
  Company Number: FR-TEVA-2018-FR-882547

PATIENT
  Age: 83 Year
  Sex: Male
  Weight: 70.7 kg

DRUGS (11)
  1. CALCIDOSE [Concomitant]
     Active Substance: CALCIUM CARBONATE
     Route: 065
  2. TRAMADOL (CHLORHYDRATE DE) [Suspect]
     Active Substance: TRAMADOL HYDROCHLORIDE
     Indication: PAIN
     Route: 048
  3. AMAREL [Concomitant]
     Active Substance: GLIMEPIRIDE
     Route: 065
  4. AVODART [Concomitant]
     Active Substance: DUTASTERIDE
     Route: 065
  5. STILNOX 10 MG, TABLET COATED SCORED [Suspect]
     Active Substance: ZOLPIDEM TARTRATE
     Indication: DEPRESSION
     Dosage: 1 DOSAGE FORMS DAILY; TABLET COATED SCORED
     Route: 048
  6. PROZAC [Suspect]
     Active Substance: FLUOXETINE HYDROCHLORIDE
     Indication: DEPRESSION
     Dosage: .5 DOSAGE FORMS DAILY; SCORED DISPERSIBLE TABLET
     Route: 048
  7. INEXIUM 40 MG, GASTRO-RESISTANT TABLET [Suspect]
     Active Substance: ESOMEPRAZOLE MAGNESIUM
     Indication: PRODUCT USED FOR UNKNOWN INDICATION
     Dosage: 1 DOSAGE FORMS DAILY;
     Route: 048
  8. ATORVASTATINE [Suspect]
     Active Substance: ATORVASTATIN
     Indication: HYPERCHOLESTEROLAEMIA
     Dosage: 1 DOSAGE FORMS DAILY;
     Route: 048
  9. PREVISCAN 20 MG, SCORED TABLET [Suspect]
     Active Substance: FLUINDIONE
     Indication: ATRIAL FIBRILLATION
     Dosage: .5 DOSAGE FORMS DAILY; SCORED TABLET
     Route: 048
  10. LEVOTHYROX [Concomitant]
     Active Substance: LEVOTHYROXINE
     Route: 065
  11. BISOPROLOL (HEMIFUMARATE DE) [Concomitant]
     Active Substance: BISOPROLOL FUMARATE
     Route: 065

REACTIONS (2)
  - Confusional state [Recovered/Resolved]
  - Somnolence [Recovered/Resolved]
